FAERS Safety Report 18425255 (Version 1)
Quarter: 2020Q4

REPORT INFORMATION
  Report Type: Spontaneous
  Country: GB (occurrence: GB)
  Receive Date: 20201026
  Receipt Date: 20201026
  Transmission Date: 20210114
  Serious: Yes (Other)
  Sender: FDA-Public Use
  Company Number: GB-DRREDDYS-GER/UKI/20/0128124

PATIENT
  Sex: Female
  Weight: 68 kg

DRUGS (2)
  1. OMEPRAZOLE (OMEPRAZOLE) [Suspect]
     Active Substance: OMEPRAZOLE
     Indication: GASTRIC HAEMORRHAGE
     Route: 048
     Dates: start: 20200922, end: 20200925
  2. IBUPROFEN. [Concomitant]
     Active Substance: IBUPROFEN
     Indication: PRODUCT USED FOR UNKNOWN INDICATION

REACTIONS (12)
  - Vomiting [Recovering/Resolving]
  - Anorectal swelling [Unknown]
  - Chills [Recovering/Resolving]
  - Abdominal rigidity [Recovering/Resolving]
  - Gastrointestinal pain [Unknown]
  - Tremor [Recovering/Resolving]
  - Malaise [Recovering/Resolving]
  - Dyschezia [Recovering/Resolving]
  - Cold sweat [Recovering/Resolving]
  - Abdominal pain [Recovering/Resolving]
  - Faeces discoloured [Recovering/Resolving]
  - Dizziness [Recovering/Resolving]

NARRATIVE: CASE EVENT DATE: 20200922
